FAERS Safety Report 9486006 (Version 1)
Quarter: 2013Q3

REPORT INFORMATION
  Report Type: Spontaneous
  Country: US (occurrence: US)
  Receive Date: 20130829
  Receipt Date: 20130829
  Transmission Date: 20140515
  Serious: Yes (Other)
  Sender: FDA-Public Use
  Company Number: US-JNJFOC-20130810025

PATIENT
  Age: 3 Year
  Sex: Male

DRUGS (11)
  1. DOXORUBICIN [Suspect]
     Indication: NEUROBLASTOMA
     Route: 042
  2. CYCLOPHOSPHAMIDE [Suspect]
     Indication: NEUROBLASTOMA
     Dosage: TOTAL DOSE OF 12.4 G/M2
     Route: 065
  3. TOPOTECAN [Suspect]
     Indication: NEUROBLASTOMA
     Route: 065
  4. VINCRISTINE [Suspect]
     Indication: NEUROBLASTOMA
     Route: 065
  5. CISPLATINUM [Suspect]
     Indication: NEUROBLASTOMA
     Route: 065
  6. ETOPOSIDE [Suspect]
     Indication: NEUROBLASTOMA
     Dosage: PREPARATIVE REGIMEN
     Route: 065
  7. ETOPOSIDE [Suspect]
     Indication: NEUROBLASTOMA
     Dosage: 1.2 G/M2
     Route: 065
  8. MELPHALAN [Suspect]
     Indication: NEUROBLASTOMA
     Dosage: PREPARATIVE REGIMEN
     Route: 065
  9. CARBOPLATIN [Suspect]
     Indication: NEUROBLASTOMA
     Dosage: PREPARATIVE REGIMEN
     Route: 065
  10. RADIOTHERAPY [Suspect]
     Indication: NEUROBLASTOMA
     Dosage: PREPARATIVE REGIMEN WITH 2160 CGY
     Route: 065
  11. 13-CIS-12-(3^-CARBOXYPHENYL)RETINOIC ACID [Suspect]
     Indication: NEUROBLASTOMA
     Route: 065

REACTIONS (1)
  - Mucoepidermoid carcinoma of salivary gland [Unknown]
